FAERS Safety Report 17224587 (Version 3)
Quarter: 2025Q2

REPORT INFORMATION
  Report Type: Spontaneous
  Country: DE (occurrence: DE)
  Receive Date: 20200102
  Receipt Date: 20250402
  Transmission Date: 20250716
  Serious: Yes (Other)
  Sender: MYLAN
  Company Number: DE-EMA-DD-20190829-KHARE_I-120348

PATIENT
  Age: 70 Year
  Sex: Male

DRUGS (88)
  1. MYCOPHENOLATE MOFETIL [Suspect]
     Active Substance: MYCOPHENOLATE MOFETIL
     Indication: Acute graft versus host disease
     Route: 065
  2. MYCOPHENOLATE MOFETIL [Suspect]
     Active Substance: MYCOPHENOLATE MOFETIL
     Indication: Chronic lymphocytic leukaemia
  3. MYCOPHENOLATE MOFETIL [Suspect]
     Active Substance: MYCOPHENOLATE MOFETIL
  4. MYCOPHENOLATE MOFETIL [Suspect]
     Active Substance: MYCOPHENOLATE MOFETIL
     Route: 065
  5. MYCOPHENOLATE MOFETIL [Suspect]
     Active Substance: MYCOPHENOLATE MOFETIL
     Route: 065
  6. MYCOPHENOLATE MOFETIL [Suspect]
     Active Substance: MYCOPHENOLATE MOFETIL
  7. MYCOPHENOLATE MOFETIL [Suspect]
     Active Substance: MYCOPHENOLATE MOFETIL
  8. MYCOPHENOLATE MOFETIL [Suspect]
     Active Substance: MYCOPHENOLATE MOFETIL
     Route: 065
  9. RITUXIMAB [Suspect]
     Active Substance: RITUXIMAB
     Indication: Chronic lymphocytic leukaemia
     Route: 065
  10. RITUXIMAB [Suspect]
     Active Substance: RITUXIMAB
     Route: 065
  11. RITUXIMAB [Suspect]
     Active Substance: RITUXIMAB
  12. RITUXIMAB [Suspect]
     Active Substance: RITUXIMAB
  13. RITUXIMAB [Suspect]
     Active Substance: RITUXIMAB
  14. RITUXIMAB [Suspect]
     Active Substance: RITUXIMAB
  15. RITUXIMAB [Suspect]
     Active Substance: RITUXIMAB
     Route: 065
  16. RITUXIMAB [Suspect]
     Active Substance: RITUXIMAB
     Route: 065
  17. RITUXIMAB [Suspect]
     Active Substance: RITUXIMAB
     Route: 065
  18. RITUXIMAB [Suspect]
     Active Substance: RITUXIMAB
     Route: 065
  19. RITUXIMAB [Suspect]
     Active Substance: RITUXIMAB
  20. RITUXIMAB [Suspect]
     Active Substance: RITUXIMAB
  21. RITUXIMAB [Suspect]
     Active Substance: RITUXIMAB
  22. RITUXIMAB [Suspect]
     Active Substance: RITUXIMAB
  23. RITUXIMAB [Suspect]
     Active Substance: RITUXIMAB
     Route: 065
  24. RITUXIMAB [Suspect]
     Active Substance: RITUXIMAB
     Route: 065
  25. IDELALISIB [Suspect]
     Active Substance: IDELALISIB
     Indication: Chronic lymphocytic leukaemia
     Route: 065
  26. IDELALISIB [Suspect]
     Active Substance: IDELALISIB
  27. IDELALISIB [Suspect]
     Active Substance: IDELALISIB
  28. IDELALISIB [Suspect]
     Active Substance: IDELALISIB
     Route: 065
  29. IDELALISIB [Suspect]
     Active Substance: IDELALISIB
     Route: 065
  30. IDELALISIB [Suspect]
     Active Substance: IDELALISIB
  31. IDELALISIB [Suspect]
     Active Substance: IDELALISIB
  32. IDELALISIB [Suspect]
     Active Substance: IDELALISIB
     Route: 065
  33. VENETOCLAX [Suspect]
     Active Substance: VENETOCLAX
     Indication: Chronic lymphocytic leukaemia
     Route: 065
  34. VENETOCLAX [Suspect]
     Active Substance: VENETOCLAX
  35. VENETOCLAX [Suspect]
     Active Substance: VENETOCLAX
  36. VENETOCLAX [Suspect]
     Active Substance: VENETOCLAX
     Route: 065
  37. VENETOCLAX [Suspect]
     Active Substance: VENETOCLAX
     Route: 065
  38. VENETOCLAX [Suspect]
     Active Substance: VENETOCLAX
  39. VENETOCLAX [Suspect]
     Active Substance: VENETOCLAX
  40. VENETOCLAX [Suspect]
     Active Substance: VENETOCLAX
     Route: 065
  41. OFATUMUMAB [Concomitant]
     Active Substance: OFATUMUMAB
     Indication: Chronic lymphocytic leukaemia
  42. OFATUMUMAB [Concomitant]
     Active Substance: OFATUMUMAB
     Route: 065
  43. OFATUMUMAB [Concomitant]
     Active Substance: OFATUMUMAB
     Route: 065
  44. OFATUMUMAB [Concomitant]
     Active Substance: OFATUMUMAB
  45. IBRUTINIB [Concomitant]
     Active Substance: IBRUTINIB
  46. IBRUTINIB [Concomitant]
     Active Substance: IBRUTINIB
     Route: 065
  47. IBRUTINIB [Concomitant]
     Active Substance: IBRUTINIB
     Route: 065
  48. IBRUTINIB [Concomitant]
     Active Substance: IBRUTINIB
  49. FLUDARABINE [Concomitant]
     Active Substance: FLUDARABINE PHOSPHATE
     Indication: Chronic lymphocytic leukaemia
  50. FLUDARABINE [Concomitant]
     Active Substance: FLUDARABINE PHOSPHATE
  51. FLUDARABINE [Concomitant]
     Active Substance: FLUDARABINE PHOSPHATE
     Route: 065
  52. FLUDARABINE [Concomitant]
     Active Substance: FLUDARABINE PHOSPHATE
     Route: 065
  53. FLUDARABINE [Concomitant]
     Active Substance: FLUDARABINE PHOSPHATE
  54. FLUDARABINE [Concomitant]
     Active Substance: FLUDARABINE PHOSPHATE
  55. FLUDARABINE [Concomitant]
     Active Substance: FLUDARABINE PHOSPHATE
     Route: 065
  56. FLUDARABINE [Concomitant]
     Active Substance: FLUDARABINE PHOSPHATE
     Route: 065
  57. FLUDARABINE [Concomitant]
     Active Substance: FLUDARABINE PHOSPHATE
  58. FLUDARABINE [Concomitant]
     Active Substance: FLUDARABINE PHOSPHATE
     Route: 065
  59. FLUDARABINE [Concomitant]
     Active Substance: FLUDARABINE PHOSPHATE
  60. FLUDARABINE [Concomitant]
     Active Substance: FLUDARABINE PHOSPHATE
     Route: 065
  61. CYCLOPHOSPHAMIDE [Concomitant]
     Active Substance: CYCLOPHOSPHAMIDE
     Route: 065
  62. CYCLOPHOSPHAMIDE [Concomitant]
     Active Substance: CYCLOPHOSPHAMIDE
  63. CYCLOPHOSPHAMIDE [Concomitant]
     Active Substance: CYCLOPHOSPHAMIDE
  64. CYCLOPHOSPHAMIDE [Concomitant]
     Active Substance: CYCLOPHOSPHAMIDE
     Route: 065
  65. CYCLOPHOSPHAMIDE [Concomitant]
     Active Substance: CYCLOPHOSPHAMIDE
  66. CYCLOPHOSPHAMIDE [Concomitant]
     Active Substance: CYCLOPHOSPHAMIDE
  67. CYCLOPHOSPHAMIDE [Concomitant]
     Active Substance: CYCLOPHOSPHAMIDE
     Route: 065
  68. CYCLOPHOSPHAMIDE [Concomitant]
     Active Substance: CYCLOPHOSPHAMIDE
     Route: 065
  69. CYCLOPHOSPHAMIDE [Concomitant]
     Active Substance: CYCLOPHOSPHAMIDE
     Route: 065
  70. CYCLOPHOSPHAMIDE [Concomitant]
     Active Substance: CYCLOPHOSPHAMIDE
  71. CYCLOPHOSPHAMIDE [Concomitant]
     Active Substance: CYCLOPHOSPHAMIDE
  72. CYCLOPHOSPHAMIDE [Concomitant]
     Active Substance: CYCLOPHOSPHAMIDE
     Route: 065
  73. CHLORAMBUCIL [Concomitant]
     Active Substance: CHLORAMBUCIL
  74. CHLORAMBUCIL [Concomitant]
     Active Substance: CHLORAMBUCIL
     Route: 065
  75. CHLORAMBUCIL [Concomitant]
     Active Substance: CHLORAMBUCIL
     Route: 065
  76. CHLORAMBUCIL [Concomitant]
     Active Substance: CHLORAMBUCIL
  77. OBINUTUZUMAB [Concomitant]
     Active Substance: OBINUTUZUMAB
     Indication: Product used for unknown indication
  78. OBINUTUZUMAB [Concomitant]
     Active Substance: OBINUTUZUMAB
     Route: 065
  79. OBINUTUZUMAB [Concomitant]
     Active Substance: OBINUTUZUMAB
     Route: 065
  80. OBINUTUZUMAB [Concomitant]
     Active Substance: OBINUTUZUMAB
  81. CYCLOSPORINE [Concomitant]
     Active Substance: CYCLOSPORINE
     Indication: Acute graft versus host disease
  82. CYCLOSPORINE [Concomitant]
     Active Substance: CYCLOSPORINE
     Route: 065
  83. CYCLOSPORINE [Concomitant]
     Active Substance: CYCLOSPORINE
     Route: 065
  84. CYCLOSPORINE [Concomitant]
     Active Substance: CYCLOSPORINE
  85. DEXAMETHASONE [Concomitant]
     Active Substance: DEXAMETHASONE
     Indication: Chronic lymphocytic leukaemia
  86. DEXAMETHASONE [Concomitant]
     Active Substance: DEXAMETHASONE
     Route: 065
  87. DEXAMETHASONE [Concomitant]
     Active Substance: DEXAMETHASONE
     Route: 065
  88. DEXAMETHASONE [Concomitant]
     Active Substance: DEXAMETHASONE

REACTIONS (3)
  - Dermatitis exfoliative generalised [Unknown]
  - Neutropenia [Recovered/Resolved]
  - Pneumonia [Recovered/Resolved]
